FAERS Safety Report 24879016 (Version 1)
Quarter: 2025Q1

REPORT INFORMATION
  Report Type: Spontaneous
  Country: US (occurrence: US)
  Receive Date: 20250123
  Receipt Date: 20250123
  Transmission Date: 20250409
  Serious: No
  Sender: CATALYST PHARMA
  Company Number: US-CATALYST PHARMACEUTICALS, INC-US-CATA-24-00351

PATIENT
  Age: 72 Year
  Sex: Female
  Weight: 147.39 kg

DRUGS (21)
  1. FIRDAPSE [Suspect]
     Active Substance: AMIFAMPRIDINE PHOSPHATE
     Indication: Myasthenic syndrome
     Route: 048
     Dates: start: 2022
  2. FIRDAPSE [Suspect]
     Active Substance: AMIFAMPRIDINE PHOSPHATE
     Dosage: 5 MG TID
     Route: 048
     Dates: start: 20231014, end: 2023
  3. FIRDAPSE [Suspect]
     Active Substance: AMIFAMPRIDINE PHOSPHATE
     Dosage: ONE TABLET, THREE TIMES DAILY
     Route: 048
     Dates: start: 20231028
  4. FIRDAPSE [Suspect]
     Active Substance: AMIFAMPRIDINE PHOSPHATE
     Dosage: ONE AND HALF 10 MG TABLETS, THREE TIMES DAILY (45 MG)
     Route: 048
     Dates: start: 20240101, end: 20240101
  5. FIRDAPSE [Suspect]
     Active Substance: AMIFAMPRIDINE PHOSPHATE
     Dosage: TWO 10 MG TABLETS 3 TIMES DAILY
     Route: 048
     Dates: start: 20240102, end: 2024
  6. FIRDAPSE [Suspect]
     Active Substance: AMIFAMPRIDINE PHOSPHATE
     Dosage: ONE 10 MG TABLET 3 X DAILY
     Route: 048
     Dates: start: 20240404
  7. ALBUTEROL [Concomitant]
     Active Substance: ALBUTEROL
     Indication: Product used for unknown indication
     Route: 055
  8. ASPIRIN [Concomitant]
     Active Substance: ASPIRIN
     Indication: Product used for unknown indication
     Route: 065
  9. CLINDAMYCIN [Concomitant]
     Active Substance: CLINDAMYCIN
     Indication: Product used for unknown indication
     Route: 065
  10. FAMOTIDINE [Concomitant]
     Active Substance: FAMOTIDINE
     Indication: Product used for unknown indication
     Route: 065
  11. FUROSEMIDE [Concomitant]
     Active Substance: FUROSEMIDE
     Indication: Product used for unknown indication
     Route: 065
  12. HYDROCHLOROTHIAZIDE [Concomitant]
     Active Substance: HYDROCHLOROTHIAZIDE
     Indication: Product used for unknown indication
     Route: 065
  13. NORCO [Concomitant]
     Active Substance: ACETAMINOPHEN\HYDROCODONE BITARTRATE
     Indication: Product used for unknown indication
     Route: 065
  14. LYUMJEV [Concomitant]
     Active Substance: INSULIN LISPRO-AABC
     Indication: Product used for unknown indication
     Route: 065
  15. METOPROLOL SUCCINATE [Concomitant]
     Active Substance: METOPROLOL SUCCINATE
     Indication: Product used for unknown indication
     Route: 065
  16. OXYBUTYNIN [Concomitant]
     Active Substance: OXYBUTYNIN
     Indication: Product used for unknown indication
     Route: 065
  17. POTASSIUM ER [Concomitant]
     Indication: Product used for unknown indication
     Route: 065
  18. PRAMIPEXOLE [Concomitant]
     Active Substance: PRAMIPEXOLE
     Indication: Product used for unknown indication
     Route: 065
  19. PRILOSEC [Concomitant]
     Active Substance: OMEPRAZOLE MAGNESIUM
     Indication: Product used for unknown indication
     Route: 065
  20. TOUJEO [Concomitant]
     Active Substance: INSULIN GLARGINE
     Indication: Product used for unknown indication
     Route: 065
  21. TUMS [Concomitant]
     Active Substance: CALCIUM CARBONATE
     Indication: Product used for unknown indication
     Route: 065

REACTIONS (11)
  - Gastrointestinal disorder [Unknown]
  - Diplopia [Unknown]
  - Visual impairment [Unknown]
  - Gait disturbance [Unknown]
  - Fatigue [Unknown]
  - Alopecia [Recovered/Resolved]
  - Psoriasis [Unknown]
  - Peripheral swelling [Unknown]
  - Back pain [Recovered/Resolved]
  - Muscular weakness [Unknown]
  - Drug ineffective [Unknown]

NARRATIVE: CASE EVENT DATE: 20240424
